FAERS Safety Report 15469849 (Version 5)
Quarter: 2019Q1

REPORT INFORMATION
  Report Type: Report from Study
  Country: US (occurrence: US)
  Receive Date: 20181005
  Receipt Date: 20190109
  Transmission Date: 20190417
  Serious: Yes (Other)
  Sender: FDA-Public Use
  Company Number: US-ALEXION PHARMACEUTICALS INC.-A201813032

PATIENT
  Sex: Female

DRUGS (1)
  1. STRENSIQ [Suspect]
     Active Substance: ASFOTASE ALFA
     Indication: PRODUCT USED FOR UNKNOWN INDICATION
     Dosage: UNK
     Route: 065

REACTIONS (14)
  - Fatigue [Unknown]
  - Chest discomfort [Unknown]
  - Pulmonary congestion [Unknown]
  - Upper respiratory tract infection [Not Recovered/Not Resolved]
  - Tooth infection [Unknown]
  - Musculoskeletal pain [Unknown]
  - Malaise [Unknown]
  - Pneumonia [Unknown]
  - Blood alkaline phosphatase increased [Unknown]
  - Arthralgia [Unknown]
  - Cough [Unknown]
  - Lower respiratory tract infection [Unknown]
  - Inappropriate schedule of product administration [Unknown]
  - Nerve injury [Unknown]

NARRATIVE: CASE EVENT DATE: 20181017
